FAERS Safety Report 19501170 (Version 1)
Quarter: 2021Q3

REPORT INFORMATION
  Report Type: Spontaneous
  Country: US (occurrence: US)
  Receive Date: 20210702
  Receipt Date: 20210702
  Transmission Date: 20211014
  Serious: Yes (Hospitalization)
  Sender: FDA-Public Use
  Company Number: None

PATIENT
  Age: 33 Year
  Sex: Female

DRUGS (1)
  1. ARANESP [Suspect]
     Active Substance: DARBEPOETIN ALFA
     Indication: ANAEMIA
     Dosage: ?          OTHER FREQUENCY:EVERY 3 WEEKS;?
     Route: 058
     Dates: start: 2019

REACTIONS (1)
  - Device occlusion [None]

NARRATIVE: CASE EVENT DATE: 20210513
